FAERS Safety Report 21532395 (Version 1)
Quarter: 2022Q4

REPORT INFORMATION
  Report Type: Spontaneous
  Country: US (occurrence: US)
  Receive Date: 20221101
  Receipt Date: 20221101
  Transmission Date: 20230113
  Serious: No
  Sender: FDA-Public Use
  Company Number: US-GLAXOSMITHKLINE-US2022AMR156146

PATIENT
  Sex: Female

DRUGS (1)
  1. ZEJULA [Suspect]
     Active Substance: NIRAPARIB
     Indication: Product used for unknown indication
     Dosage: 200 MG, QD
     Route: 048

REACTIONS (6)
  - White blood cell count abnormal [Unknown]
  - White blood cell count decreased [Unknown]
  - Painful respiration [Unknown]
  - Pain [Unknown]
  - Constipation [Unknown]
  - Colectomy [Unknown]
